FAERS Safety Report 13139755 (Version 1)
Quarter: 2017Q1

REPORT INFORMATION
  Report Type: Spontaneous
  Country: JP (occurrence: JP)
  Receive Date: 20170123
  Receipt Date: 20170123
  Transmission Date: 20170428
  Serious: Yes (Other)
  Sender: FDA-Public Use
  Company Number: JP-BAYER-2017-007856

PATIENT
  Sex: Male

DRUGS (3)
  1. ACETYLSALICYLIC ACID({=100 MG) [Suspect]
     Active Substance: ASPIRIN
     Dosage: 100 MG, QD
     Route: 048
  2. HEPARIN [Interacting]
     Active Substance: HEPARIN SODIUM
     Dosage: UNK
  3. CLOPIDOGREL [Interacting]
     Active Substance: CLOPIDOGREL BISULFATE
     Dosage: 300 MG, QD
     Route: 048

REACTIONS (6)
  - Blood pressure decreased [Recovered/Resolved]
  - Shock [Recovered/Resolved]
  - Potentiating drug interaction [None]
  - Labelled drug-drug interaction medication error [None]
  - Drug administration error [None]
  - Hepatic haemorrhage [None]
